FAERS Safety Report 4995142-6 (Version None)
Quarter: 2006Q2

REPORT INFORMATION
  Report Type: 
  Country: None (occurrence: None)
  Receive Date: 20060508
  Receipt Date: 20050428
  Transmission Date: 20061013
  Serious: Yes (Death, Hospitalization, Disabling)
  Sender: FDA-Public Use
  Company Number: US-MERCK-0505USA00114

PATIENT
  Age: 68 Year
  Sex: Female
  Weight: 61 kg

DRUGS (3)
  1. VIOXX [Suspect]
     Indication: ARTHRALGIA
     Route: 048
     Dates: start: 20010608, end: 20021224
  2. MOTRIN [Concomitant]
     Route: 048
  3. EXTRA STRENGTH TYLENOL [Concomitant]
     Route: 048

REACTIONS (12)
  - BACTERAEMIA [None]
  - CARDIO-RESPIRATORY ARREST [None]
  - CEREBELLAR HAEMORRHAGE [None]
  - CNS VENTRICULITIS [None]
  - DECUBITUS ULCER [None]
  - DEHYDRATION [None]
  - HAEMORRHAGE INTRACRANIAL [None]
  - HYPONATRAEMIA [None]
  - PNEUMONIA [None]
  - RASH ERYTHEMATOUS [None]
  - RENAL FAILURE ACUTE [None]
  - RESPIRATORY DISTRESS [None]
